FAERS Safety Report 15745167 (Version 2)
Quarter: 2019Q1

REPORT INFORMATION
  Report Type: Spontaneous
  Country: US (occurrence: US)
  Receive Date: 20181220
  Receipt Date: 20190312
  Transmission Date: 20190417
  Serious: Yes (Other)
  Sender: FDA-Public Use
  Company Number: US-GILEAD-2018-0380900

PATIENT
  Age: 64 Year
  Sex: Male

DRUGS (17)
  1. MERREM [Concomitant]
     Active Substance: MEROPENEM
  2. PRILOSEC [Concomitant]
     Active Substance: OMEPRAZOLE MAGNESIUM
  3. VALTREX [Concomitant]
     Active Substance: VALACYCLOVIR HYDROCHLORIDE
  4. NORMAL SALINE [Concomitant]
     Active Substance: SODIUM CHLORIDE
  5. MAXIPIME [Concomitant]
     Active Substance: CEFEPIME HYDROCHLORIDE
  6. DIFLUCAN [Concomitant]
     Active Substance: FLUCONAZOLE
  7. KEPPRA [Concomitant]
     Active Substance: LEVETIRACETAM
  8. ZARZIO [Concomitant]
     Active Substance: FILGRASTIM
  9. COMPAZINE [Concomitant]
     Active Substance: PROCHLORPERAZINE MALEATE
  10. TYLENOL [Concomitant]
     Active Substance: ACETAMINOPHEN
  11. NYDRAZID [Concomitant]
     Active Substance: ISONIAZID
  12. YESCARTA [Suspect]
     Active Substance: AXICABTAGENE CILOLEUCEL
     Indication: DIFFUSE LARGE B-CELL LYMPHOMA
     Dosage: 68 ML, ONCE
     Route: 042
     Dates: start: 20180618, end: 20180618
  13. BENADRYL [Concomitant]
     Active Substance: DIPHENHYDRAMINE HYDROCHLORIDE
  14. MAGNESIUM SULFATE. [Concomitant]
     Active Substance: MAGNESIUM SULFATE
  15. LEVAQUIN [Concomitant]
     Active Substance: LEVOFLOXACIN
  16. VITAMIN B6 [Concomitant]
     Active Substance: PYRIDOXINE HYDROCHLORIDE
  17. CLARITIN [Concomitant]
     Active Substance: LORATADINE

REACTIONS (2)
  - Cytokine release syndrome [Recovered/Resolved]
  - CAR T-cell-related encephalopathy syndrome [Recovered/Resolved]

NARRATIVE: CASE EVENT DATE: 20180622
